FAERS Safety Report 4518754-2 (Version None)
Quarter: 2004Q4

REPORT INFORMATION
  Report Type: 
  Country: None (occurrence: None)
  Receive Date: 20041201
  Receipt Date: 20041117
  Transmission Date: 20050328
  Serious: Yes (Hospitalization)
  Sender: FDA-Public Use
  Company Number: US-2004-034107

PATIENT
  Age: 41 Year
  Sex: Female
  Weight: 158.7 kg

DRUGS (2)
  1. BETASERON [Suspect]
     Indication: MULTIPLE SCLEROSIS
     Dosage: 8 MIU, EVERY 2D, SUBCUTANEOUS
     Route: 058
     Dates: start: 20030818, end: 20040924
  2. IBUPROFEN [Concomitant]

REACTIONS (15)
  - ABDOMINAL DISTENSION [None]
  - ABDOMINAL PAIN UPPER [None]
  - ASPARTATE AMINOTRANSFERASE INCREASED [None]
  - BILIRUBIN CONJUGATED INCREASED [None]
  - BLOOD ALKALINE PHOSPHATASE INCREASED [None]
  - BLOOD BILIRUBIN INCREASED [None]
  - CHILLS [None]
  - CONSTIPATION [None]
  - DYSPNOEA [None]
  - HEPATOMEGALY [None]
  - HYPOKALAEMIA [None]
  - NAUSEA [None]
  - PANCREATIC DISORDER [None]
  - PYREXIA [None]
  - VOMITING [None]
